FAERS Safety Report 10513324 (Version 1)
Quarter: 2014Q4

REPORT INFORMATION
  Report Type: Spontaneous
  Country: US (occurrence: US)
  Receive Date: 20141013
  Receipt Date: 20141013
  Transmission Date: 20150528
  Serious: Yes (Other)
  Sender: FDA-Public Use
  Company Number: US-RANBAXY-2014US-86223

PATIENT
  Sex: Female

DRUGS (1)
  1. MINOCYCLINE [Suspect]
     Active Substance: MINOCYCLINE\MINOCYCLINE HYDROCHLORIDE
     Indication: ACNE
     Dosage: 100 MG, BID
     Route: 065
     Dates: start: 201006, end: 201109

REACTIONS (10)
  - Hepatitis [Unknown]
  - Lupus-like syndrome [Unknown]
  - Arthralgia [Unknown]
  - General physical condition abnormal [Unknown]
  - Anxiety [Unknown]
  - Mental impairment [Unknown]
  - Pain [Unknown]
  - Injury [Unknown]
  - Fear of death [Unknown]
  - Economic problem [Unknown]

NARRATIVE: CASE EVENT DATE: 201109
